FAERS Safety Report 9706408 (Version 1)
Quarter: 2013Q4

REPORT INFORMATION
  Report Type: Spontaneous
  Country: US (occurrence: US)
  Receive Date: 20131125
  Receipt Date: 20131125
  Transmission Date: 20140711
  Serious: Yes (Other)
  Sender: FDA-Public Use
  Company Number: US-BIOGENIDEC-2013BI112654

PATIENT
  Age: 59 Year
  Sex: Female

DRUGS (15)
  1. TECFIDERA [Suspect]
     Indication: MULTIPLE SCLEROSIS
     Route: 048
  2. ASPIRIN EC [Concomitant]
  3. BENADRYL [Concomitant]
  4. CALCIUM 600 [Concomitant]
  5. DIAZEPAM [Concomitant]
  6. DILANTIN [Concomitant]
  7. EXCEDRIN MIGRAINE [Concomitant]
  8. EXCEDRIN PM [Concomitant]
  9. IBUPROFEN [Concomitant]
  10. KEPPRA [Concomitant]
  11. LONOX [Concomitant]
  12. NEXIUM [Concomitant]
  13. OXYBUTYNIN CHLORIDE [Concomitant]
  14. VITAMIN B-6 [Concomitant]
  15. VITAMIN D [Concomitant]

REACTIONS (1)
  - Epilepsy [Unknown]
